FAERS Safety Report 8382502-9 (Version None)
Quarter: 2012Q2

REPORT INFORMATION
  Report Type: 
  Country: None (occurrence: None)
  Receive Date: 20120524
  Receipt Date: 20120518
  Transmission Date: 20120825
  Serious: Yes (Other)
  Sender: FDA-Public Use
  Company Number: GB-JNJFOC-20120312986

PATIENT
  Sex: Female

DRUGS (3)
  1. SIMPONI [Suspect]
     Route: 058
  2. SIMPONI [Suspect]
     Route: 058
     Dates: start: 20120409
  3. SIMPONI [Suspect]
     Indication: PRODUCT USED FOR UNKNOWN INDICATION
     Route: 058
     Dates: start: 20120309

REACTIONS (5)
  - BLOOD TEST ABNORMAL [None]
  - INFECTION [None]
  - BLOOD POTASSIUM INCREASED [None]
  - COUGH [None]
  - OROPHARYNGEAL PAIN [None]
